FAERS Safety Report 21040189 (Version 3)
Quarter: 2022Q4

REPORT INFORMATION
  Report Type: Report from Study
  Country: US (occurrence: US)
  Receive Date: 20220704
  Receipt Date: 20221125
  Transmission Date: 20230113
  Serious: No
  Sender: FDA-Public Use
  Company Number: US-NOVARTISTESTPH-NVSC2022US151529

PATIENT
  Sex: Female

DRUGS (2)
  1. KESIMPTA [Suspect]
     Active Substance: OFATUMUMAB
     Indication: Multiple sclerosis
     Dosage: 20 MG, QW (FIRST OF LOADING DOSE)
     Route: 058
  2. KESIMPTA [Suspect]
     Active Substance: OFATUMUMAB
     Dosage: 20 MG (INJECT 1 PEN (20MG) SUBCUTANEOUSLY AT WEEK 0, WEEK 1 AND WEEK 2 AS DIRECTED)
     Route: 058

REACTIONS (2)
  - Fatigue [Unknown]
  - Feeling abnormal [Unknown]
